FAERS Safety Report 15127029 (Version 1)
Quarter: 2018Q3

REPORT INFORMATION
  Report Type: Spontaneous
  Country: FR (occurrence: FR)
  Receive Date: 20180710
  Receipt Date: 20180710
  Transmission Date: 20181010
  Serious: Yes (Other)
  Sender: FDA-Public Use
  Company Number: FR-ALLERGAN-1834358US

PATIENT
  Sex: Female

DRUGS (1)
  1. TRIPTORELIN PAMOATE ? BP [Suspect]
     Active Substance: TRIPTORELIN PAMOATE
     Indication: PRODUCT USED FOR UNKNOWN INDICATION
     Dosage: UNK
     Route: 065

REACTIONS (3)
  - Suicidal ideation [Recovered/Resolved]
  - Depression [Recovered/Resolved]
  - Off label use [Unknown]
